FAERS Safety Report 7249992-6 (Version None)
Quarter: 2011Q1

REPORT INFORMATION
  Report Type: 
  Country: None (occurrence: None)
  Receive Date: 20110128
  Receipt Date: 20110117
  Transmission Date: 20110831
  Serious: Yes (Other)
  Sender: FDA-Public Use
  Company Number: US-SANOFI-AVENTIS-2011SA003874

PATIENT
  Sex: Female

DRUGS (4)
  1. MULTAQ [Suspect]
     Indication: ATRIAL FIBRILLATION
     Route: 048
     Dates: start: 20101001, end: 20110101
  2. MULTAQ [Suspect]
     Route: 048
     Dates: start: 20110101
  3. PRILOSEC [Concomitant]
  4. COREG [Concomitant]

REACTIONS (4)
  - ATRIAL FIBRILLATION [None]
  - DRUG DOSE OMISSION [None]
  - ABDOMINAL PAIN UPPER [None]
  - UNDERDOSE [None]
